FAERS Safety Report 13412317 (Version 3)
Quarter: 2020Q1

REPORT INFORMATION
  Report Type: Spontaneous
  Country: US (occurrence: US)
  Receive Date: 20170406
  Receipt Date: 20200212
  Transmission Date: 20200409
  Serious: No
  Sender: FDA-Public Use
  Company Number: US-JNJFOC-20170308146

PATIENT
  Sex: Male

DRUGS (7)
  1. RISPERDAL [Suspect]
     Active Substance: RISPERIDONE
     Indication: AUTISM SPECTRUM DISORDER
     Route: 048
     Dates: start: 2006, end: 2008
  2. RISPERIDONE. [Suspect]
     Active Substance: RISPERIDONE
     Indication: OBSESSIVE-COMPULSIVE DISORDER
     Dosage: IN VARYING DOSES OF 0.25, 0.5 MG, 1 MG AND 2 MG
     Route: 048
     Dates: start: 20081015, end: 20140116
  3. RISPERDAL [Suspect]
     Active Substance: RISPERIDONE
     Indication: OBSESSIVE-COMPULSIVE DISORDER
     Route: 048
     Dates: start: 20081015, end: 20140114
  4. RISPERDAL [Suspect]
     Active Substance: RISPERIDONE
     Indication: PHOBIA
     Route: 048
     Dates: start: 201401, end: 20140129
  5. RISPERIDONE. [Suspect]
     Active Substance: RISPERIDONE
     Indication: AUTISM SPECTRUM DISORDER
  6. RISPERDAL [Suspect]
     Active Substance: RISPERIDONE
     Indication: MENTAL DISORDER
  7. RISPERIDONE. [Suspect]
     Active Substance: RISPERIDONE
     Indication: PHOBIA

REACTIONS (3)
  - Emotional distress [Unknown]
  - Gynaecomastia [Unknown]
  - Tremor [Unknown]

NARRATIVE: CASE EVENT DATE: 2013
